FAERS Safety Report 8792879 (Version 1)
Quarter: 2012Q4

REPORT INFORMATION
  Report Type: Report from Study
  Country: BR (occurrence: BR)
  Receive Date: 20120918
  Receipt Date: 20120918
  Transmission Date: 20130627
  Serious: Yes (Other)
  Sender: FDA-Public Use
  Company Number: BR-PFIZER INC-2012226721

PATIENT
  Age: 56 Year
  Sex: Male
  Weight: 80 kg

DRUGS (4)
  1. LIPITOR [Suspect]
     Indication: BLOOD CHOLESTEROL INCREASED
     Dosage: 40 mg, 1x/day
     Route: 048
     Dates: start: 20080627, end: 20120911
  2. SELOZOK [Concomitant]
     Indication: BLOOD CHOLESTEROL
     Dosage: 50 mg, 1x/day
     Route: 048
     Dates: start: 2008
  3. EUTHYROX [Concomitant]
     Indication: BLOOD CHOLESTEROL
     Dosage: 100 mg, 1x/day
     Route: 048
     Dates: start: 2008
  4. VASOGARD [Concomitant]
     Indication: BLOOD CHOLESTEROL
     Dosage: 50 mg, 1x/day
     Route: 048
     Dates: start: 2008

REACTIONS (1)
  - Carotid arteriosclerosis [Unknown]
